FAERS Safety Report 12333852 (Version 1)
Quarter: 2016Q2

REPORT INFORMATION
  Report Type: Spontaneous
  Country: US (occurrence: US)
  Receive Date: 20160504
  Receipt Date: 20160504
  Transmission Date: 20160815
  Serious: No
  Sender: FDA-Public Use
  Company Number: US-ROCHE-ITM201502IM010453

PATIENT
  Sex: Male
  Weight: 95.34 kg

DRUGS (7)
  1. ACTOS [Concomitant]
     Active Substance: PIOGLITAZONE HYDROCHLORIDE
     Route: 048
  2. MYLANTA (ALUMINUM HYDROXIDE/MAGNESIUM HYDROXIDE) [Concomitant]
  3. JANUVIA [Concomitant]
     Active Substance: SITAGLIPTIN PHOSPHATE
     Route: 048
  4. ESBRIET [Suspect]
     Active Substance: PIRFENIDONE
     Indication: IDIOPATHIC PULMONARY FIBROSIS
     Dosage: 3 CAPSULES ORAL TID
     Route: 048
     Dates: start: 20150129
  5. ESBRIET [Suspect]
     Active Substance: PIRFENIDONE
     Dosage: 2403 MG
     Route: 048
  6. GLIPIZIDE. [Concomitant]
     Active Substance: GLIPIZIDE
     Route: 048
  7. LANTUS SOLOSTAR [Concomitant]
     Active Substance: INSULIN GLARGINE
     Dosage: 100 U/ML
     Route: 058

REACTIONS (4)
  - Constipation [Unknown]
  - Abdominal discomfort [Unknown]
  - Flatulence [Unknown]
  - Dyspepsia [Unknown]
